FAERS Safety Report 6727630-6 (Version None)
Quarter: 2010Q2

REPORT INFORMATION
  Report Type: 
  Country: None (occurrence: None)
  Receive Date: 20100517
  Receipt Date: 20100507
  Transmission Date: 20101027
  Serious: Yes (Other)
  Sender: FDA-Public Use
  Company Number: ZA-ASTRAZENECA-2010SE21364

PATIENT
  Age: 7 Year
  Sex: Male

DRUGS (2)
  1. BUDESONIDE [Suspect]
     Indication: OBSTRUCTIVE AIRWAYS DISORDER
     Route: 055
  2. RITONAVIR [Suspect]
     Indication: HIV INFECTION

REACTIONS (3)
  - ADRENAL SUPPRESSION [None]
  - CUSHING'S SYNDROME [None]
  - DRUG INTERACTION [None]
